FAERS Safety Report 13366709 (Version 3)
Quarter: 2017Q4

REPORT INFORMATION
  Report Type: Report from Study
  Country: US (occurrence: US)
  Receive Date: 20170323
  Receipt Date: 20171027
  Transmission Date: 20180320
  Serious: Yes (Other)
  Sender: FDA-Public Use
  Company Number: PHHY2017US043862

PATIENT
  Age: 59 Year
  Sex: Female

DRUGS (1)
  1. GILENYA [Suspect]
     Active Substance: FINGOLIMOD HYDROCHLORIDE
     Indication: MULTIPLE SCLEROSIS
     Dosage: UNK UNK, QD
     Route: 048

REACTIONS (10)
  - Mean cell haemoglobin decreased [Unknown]
  - Neutrophil count increased [Unknown]
  - Vitamin D deficiency [Unknown]
  - Red blood cell count increased [Recovered/Resolved]
  - Upper respiratory tract infection [Recovered/Resolved]
  - Mean cell haemoglobin concentration decreased [Unknown]
  - Osteoarthritis [Recovered/Resolved]
  - Lymphocyte count decreased [Unknown]
  - Mean cell volume decreased [Unknown]
  - Red cell distribution width increased [Unknown]

NARRATIVE: CASE EVENT DATE: 20161215
